FAERS Safety Report 26203929 (Version 1)
Quarter: 2025Q4

REPORT INFORMATION
  Report Type: Spontaneous
  Country: EU (occurrence: EU)
  Receive Date: 20251226
  Receipt Date: 20251226
  Transmission Date: 20260118
  Serious: Yes (Hospitalization)
  Sender: AMGEN
  Company Number: EU-GLAXOSMITHKLINE-CZ2020GSK224553

PATIENT
  Age: 63 Year
  Sex: Female
  Weight: 90 kg

DRUGS (14)
  1. BEVACIZUMAB [Suspect]
     Active Substance: BEVACIZUMAB
     Indication: Ovarian cancer
     Dosage: 638 MG
     Route: 040
     Dates: start: 20191227
  2. BEVACIZUMAB [Suspect]
     Active Substance: BEVACIZUMAB
     Dosage: 615 MG
     Route: 040
     Dates: start: 20200206
  3. NIRAPARIB [Suspect]
     Active Substance: NIRAPARIB
     Indication: Ovarian cancer
     Dosage: UNK
     Route: 065
     Dates: start: 20200326
  4. PLACEBO [Suspect]
     Active Substance: PLACEBO
     Indication: Ovarian cancer
     Dosage: UNK
     Route: 065
     Dates: start: 20191205
  5. PLACEBO [Suspect]
     Active Substance: PLACEBO
     Dosage: UNK
     Route: 065
     Dates: start: 20200326
  6. CARBOPLATIN [Suspect]
     Active Substance: CARBOPLATIN
     Indication: Ovarian cancer
     Dosage: 505 MG
     Route: 040
     Dates: start: 20191114
  7. CARBOPLATIN [Suspect]
     Active Substance: CARBOPLATIN
     Dosage: 642 MG
     Route: 040
     Dates: start: 20191205
  8. CARBOPLATIN [Suspect]
     Active Substance: CARBOPLATIN
     Dosage: 580 MG
     Route: 040
     Dates: start: 20191227
  9. CARBOPLATIN [Suspect]
     Active Substance: CARBOPLATIN
     Dosage: 569 MG
     Route: 040
     Dates: start: 20200116
  10. CARBOPLATIN [Suspect]
     Active Substance: CARBOPLATIN
     Dosage: 615 MG
     Route: 040
     Dates: start: 20200206
  11. CARBOPLATIN [Suspect]
     Active Substance: CARBOPLATIN
     Dosage: 547 MG
     Route: 040
     Dates: start: 20200227
  12. TAXOL [Suspect]
     Active Substance: PACLITAXEL
     Indication: Ovarian cancer
     Dosage: 277 MG
     Route: 040
     Dates: start: 20191114
  13. TAXOL [Suspect]
     Active Substance: PACLITAXEL
     Dosage: 340 MG
     Route: 040
     Dates: start: 20191205
  14. TAXOL [Suspect]
     Active Substance: PACLITAXEL
     Dosage: 334 MG
     Route: 040
     Dates: start: 20200206

REACTIONS (1)
  - Anaemia [Recovered/Resolved]

NARRATIVE: CASE EVENT DATE: 20201021
